FAERS Safety Report 11520061 (Version 1)
Quarter: 2015Q3

REPORT INFORMATION
  Report Type: Spontaneous
  Country: US (occurrence: None)
  Receive Date: 20150917
  Receipt Date: 20150917
  Transmission Date: 20151125
  Serious: Yes (Other)
  Sender: FDA-Public Use
  Company Number: None

PATIENT
  Age: 82 Year
  Sex: Male

DRUGS (2)
  1. SUTENT [Suspect]
     Active Substance: SUNITINIB MALATE
     Indication: RENAL CANCER
     Dosage: 1 CAP QD X 14 DAYS
     Route: 048
     Dates: start: 20150306, end: 20150722
  2. SUTENT [Suspect]
     Active Substance: SUNITINIB MALATE
     Indication: MALIGNANT GENITOURINARY TRACT NEOPLASM
     Dosage: 1 CAP QD X 14 DAYS
     Route: 048
     Dates: start: 20150306, end: 20150722

REACTIONS (2)
  - Skin disorder [None]
  - Skin exfoliation [None]

NARRATIVE: CASE EVENT DATE: 201503
